FAERS Safety Report 8401770-8 (Version None)
Quarter: 2012Q2

REPORT INFORMATION
  Report Type: 
  Country: None (occurrence: None)
  Receive Date: 20120529
  Receipt Date: 20090210
  Transmission Date: 20120825
  Serious: Yes (Other)
  Sender: FDA-Public Use
  Company Number: 005648

PATIENT
  Age: 66 Year
  Sex: Female

DRUGS (4)
  1. AMLODIPINE [Concomitant]
  2. PLETAL [Suspect]
     Indication: ARTERIOSCLEROSIS
     Dosage: 50 MG, BID, ORAL
     Route: 048
     Dates: start: 20090117, end: 20090124
  3. BIOSYNTHETIC HUMAN INSULIN 30R (BIOSYNTHETIC HUMAN INSULIN 30R) [Concomitant]
  4. SIMVASTATIN (SIMVASTTATIN) [Concomitant]

REACTIONS (3)
  - DEAFNESS [None]
  - PALPITATIONS [None]
  - BLOOD PRESSURE INCREASED [None]
